FAERS Safety Report 15633967 (Version 1)
Quarter: 2018Q4

REPORT INFORMATION
  Report Type: Spontaneous
  Country: US (occurrence: US)
  Receive Date: 20181119
  Receipt Date: 20181119
  Transmission Date: 20190205
  Serious: No
  Sender: FDA-Public Use
  Company Number: US-SA-2018SA312893

PATIENT
  Sex: Female

DRUGS (1)
  1. ACT DRY MOUTH ANTICAVITY FLUORIDE [Suspect]
     Active Substance: SODIUM FLUORIDE

REACTIONS (1)
  - Product taste abnormal [Unknown]
